FAERS Safety Report 10076754 (Version 1)
Quarter: 2014Q2

REPORT INFORMATION
  Report Type: Spontaneous
  Country: US (occurrence: US)
  Receive Date: 20140414
  Receipt Date: 20140414
  Transmission Date: 20141212
  Serious: Yes (Other)
  Sender: FDA-Public Use
  Company Number: US-AMGEN INC.-USASP2014025250

PATIENT
  Sex: Female

DRUGS (4)
  1. PROLIA [Suspect]
     Indication: OSTEOPOROSIS POSTMENOPAUSAL
     Dosage: UNK
     Route: 065
     Dates: start: 2012
  2. LORAZEPAM [Concomitant]
     Dosage: UNK UNK, AS NECESSARY
  3. TRAMADOL [Concomitant]
     Dosage: UNK UNK, AS NECESSARY
  4. EXCEDRIN                           /00110301/ [Concomitant]
     Dosage: UNK UNK, AS NECESSARY

REACTIONS (3)
  - Osteonecrosis of jaw [Unknown]
  - Burning sensation [Unknown]
  - Malaise [Unknown]
